FAERS Safety Report 7726748-9 (Version None)
Quarter: 2011Q3

REPORT INFORMATION
  Report Type: 
  Country: None (occurrence: None)
  Receive Date: 20110902
  Receipt Date: 20110819
  Transmission Date: 20111222
  Serious: Yes (Hospitalization)
  Sender: FDA-Public Use
  Company Number: US-GLAXOSMITHKLINE-A0747324A

PATIENT
  Age: 68 Year
  Sex: Male
  Weight: 80.5 kg

DRUGS (8)
  1. METFORMIN HCL [Concomitant]
     Dates: start: 19960101, end: 20030430
  2. SIMVASTATIN [Concomitant]
     Dates: start: 20030101
  3. DIABETA [Concomitant]
     Dates: start: 19960101, end: 20070101
  4. VYTORIN [Concomitant]
     Dates: start: 20041001
  5. ALPRAZOLAM [Concomitant]
     Dates: start: 20030401
  6. AVANDIA [Suspect]
     Indication: TYPE 2 DIABETES MELLITUS
     Dosage: 4MG TWICE PER DAY
     Route: 048
     Dates: start: 20000101, end: 20070101
  7. ASPIRIN [Concomitant]
     Dates: start: 20030101
  8. AVANDAMET [Suspect]
     Indication: DIABETES MELLITUS
     Route: 048
     Dates: start: 20030430

REACTIONS (4)
  - VISION BLURRED [None]
  - CORONARY ARTERY DISEASE [None]
  - CEREBROVASCULAR ACCIDENT [None]
  - MYOCARDIAL INFARCTION [None]
